FAERS Safety Report 20232092 (Version 1)
Quarter: 2021Q4

REPORT INFORMATION
  Report Type: Spontaneous
  Country: US (occurrence: None)
  Receive Date: 20211224
  Receipt Date: 20211224
  Transmission Date: 20220303
  Serious: Yes (Other)
  Sender: FDA-Public Use
  Company Number: None

PATIENT
  Age: 56 Year
  Sex: Female

DRUGS (1)
  1. BAMLANIVIMAB\ETESEVIMAB [Suspect]
     Active Substance: BAMLANIVIMAB\ETESEVIMAB
     Dates: start: 20211223, end: 20211223

REACTIONS (10)
  - Hypersensitivity [None]
  - Infusion related reaction [None]
  - Throat tightness [None]
  - Blood pressure decreased [None]
  - Heart rate decreased [None]
  - Headache [None]
  - Renal pain [None]
  - Asthenia [None]
  - Musculoskeletal chest pain [None]
  - Gait disturbance [None]

NARRATIVE: CASE EVENT DATE: 20211223
